FAERS Safety Report 15689114 (Version 1)
Quarter: 2018Q4

REPORT INFORMATION
  Report Type: Spontaneous
  Country: US (occurrence: US)
  Receive Date: 20181205
  Receipt Date: 20181205
  Transmission Date: 20190205
  Serious: No
  Sender: FDA-Public Use
  Company Number: US-AMGEN INC.-USASP2018171621

PATIENT
  Sex: Female

DRUGS (1)
  1. AIMOVIG [Suspect]
     Active Substance: ERENUMAB-AOOE
     Indication: MIGRAINE PROPHYLAXIS
     Dosage: 70 MG, QMO
     Route: 030
     Dates: start: 20181116, end: 20181116

REACTIONS (10)
  - Tinnitus [Unknown]
  - Incorrect route of product administration [Unknown]
  - Arthralgia [Unknown]
  - Dysstasia [Unknown]
  - Alopecia [Unknown]
  - Headache [Unknown]
  - Muscular weakness [Unknown]
  - Constipation [Unknown]
  - Pain in extremity [Unknown]
  - Fatigue [Unknown]

NARRATIVE: CASE EVENT DATE: 20181116
